FAERS Safety Report 7241290-X (Version None)
Quarter: 2011Q1

REPORT INFORMATION
  Report Type: 
  Country: None (occurrence: None)
  Receive Date: 20110124
  Receipt Date: 20110112
  Transmission Date: 20110831
  Serious: Yes (Other)
  Sender: FDA-Public Use
  Company Number: B0693746A

PATIENT
  Age: 59 Year
  Sex: Female

DRUGS (4)
  1. IMOVANE [Suspect]
     Indication: PRODUCT USED FOR UNKNOWN INDICATION
     Dosage: 7.5MG PER DAY
     Route: 048
     Dates: start: 20101026, end: 20101110
  2. VAXIGRIP [Suspect]
     Indication: PROPHYLAXIS
     Route: 030
     Dates: start: 20101108, end: 20101108
  3. XARELTO [Suspect]
     Indication: THROMBOSIS PROPHYLAXIS
     Dosage: 1UNIT PER DAY
     Route: 048
     Dates: start: 20101018, end: 20101025
  4. ARIXTRA [Suspect]
     Indication: THROMBOSIS PROPHYLAXIS
     Dosage: 2.5MG PER DAY
     Route: 058
     Dates: start: 20101026, end: 20101111

REACTIONS (1)
  - NEUTROPENIA [None]
